FAERS Safety Report 8870136 (Version 1)
Quarter: 2012Q4

REPORT INFORMATION
  Report Type: 
  Country: US (occurrence: US)
  Receive Date: 20121026
  Receipt Date: 20121026
  Transmission Date: 20130627
  Serious: No
  Sender: FDA-Public Use
  Company Number: US-AMGEN-USASP2012043828

PATIENT
  Age: 59 Year
  Sex: Female
  Weight: 70.75 kg

DRUGS (6)
  1. ENBREL [Suspect]
     Indication: PRODUCT USED FOR UNKNOWN INDICATION
     Dosage: 50 mg, qwk
     Route: 058
  2. METHOTREXATE [Concomitant]
     Dosage: 20 mg, UNK
  3. FOLIC ACID [Concomitant]
     Dosage: 20 mg, UNK
  4. WELLBUTRIN [Concomitant]
     Dosage: 100 mg, UNK
  5. MELOXICAM [Concomitant]
     Dosage: 15 mg, UNK
  6. XANAX [Concomitant]
     Dosage: 1 mg, UNK

REACTIONS (2)
  - Dizziness [Unknown]
  - Injection site pain [Unknown]
